FAERS Safety Report 24980888 (Version 1)
Quarter: 2025Q1

REPORT INFORMATION
  Report Type: Spontaneous
  Country: US (occurrence: None)
  Receive Date: 20250215
  Receipt Date: 20250215
  Transmission Date: 20250408
  Serious: No
  Sender: FDA-CTU
  Company Number: None

PATIENT
  Age: 81 Year
  Sex: Male

DRUGS (1)
  1. ACTEMRA [Suspect]
     Active Substance: TOCILIZUMAB
     Indication: Giant cell arteritis
     Dosage: FREQUENCY : WEEKLY;?
     Route: 058
     Dates: start: 202408

REACTIONS (5)
  - Urinary tract infection [None]
  - Fall [None]
  - Skin laceration [None]
  - Wound haemorrhage [None]
  - Skin swelling [None]
